FAERS Safety Report 7061953-9 (Version None)
Quarter: 2010Q4

REPORT INFORMATION
  Report Type: 
  Country: None (occurrence: None)
  Receive Date: 20101026
  Receipt Date: 20101014
  Transmission Date: 20110411
  Serious: Yes (Other)
  Sender: FDA-Public Use
  Company Number: US-PFIZER INC-2010093382

PATIENT
  Age: 59 Year
  Sex: Female
  Weight: 63.86 kg

DRUGS (13)
  1. ADRIAMYCIN PFS [Suspect]
     Indication: BREAST CANCER
     Dosage: 86 MG, EVERY CYCLE
     Route: 042
     Dates: start: 20090909, end: 20090909
  2. ADRIAMYCIN PFS [Suspect]
     Dosage: 86 MG, EVERY CYCLE
     Route: 042
     Dates: start: 20090930, end: 20090930
  3. ADRIAMYCIN PFS [Suspect]
     Dosage: 86 MG, EVERY CYCLE
     Route: 042
     Dates: start: 20091023, end: 20091023
  4. ADRIAMYCIN PFS [Suspect]
     Dosage: 86 MG, EVERY CYCLE
     Route: 042
     Dates: start: 20091113, end: 20091113
  5. TAXOTERE [Suspect]
     Indication: BREAST CANCER
     Dosage: 86 MG, EVERY CYCLE
     Route: 041
     Dates: start: 20091229, end: 20091229
  6. TAXOTERE [Suspect]
     Dosage: 86 MG, EVERY CYCLE
     Route: 041
     Dates: start: 20100120, end: 20100120
  7. TAXOTERE [Suspect]
     Dosage: 86 MG, EVERY CYCLE
     Route: 041
     Dates: start: 20100212, end: 20100212
  8. TAXOTERE [Suspect]
     Dosage: 86 MG, EVERY CYCLE
     Route: 041
     Dates: start: 20100305, end: 20100305
  9. TAXOTERE [Suspect]
     Dosage: 86 MG, EVERY CYCLE
     Route: 041
     Dates: start: 20100326, end: 20100326
  10. CYTOXAN [Suspect]
     Indication: BREAST CANCER
     Dosage: 860 MG, EVERY CYCLE
     Route: 042
     Dates: start: 20090909, end: 20090909
  11. CYTOXAN [Suspect]
     Dosage: 860 MG, EVERY CYCLE
     Route: 042
     Dates: start: 20090930, end: 20090930
  12. CYTOXAN [Suspect]
     Dosage: 860 MG, EVERY CYCLE
     Route: 042
     Dates: start: 20091023, end: 20091023
  13. CYTOXAN [Suspect]
     Dosage: 860 MG, EVERY CYCLE
     Route: 042
     Dates: start: 20091113, end: 20091113

REACTIONS (3)
  - DECREASED ACTIVITY [None]
  - SLEEP DISORDER [None]
  - TINNITUS [None]
